FAERS Safety Report 8028106-9 (Version None)
Quarter: 2012Q1

REPORT INFORMATION
  Report Type: 
  Country: None (occurrence: None)
  Receive Date: 20120106
  Receipt Date: 20120102
  Transmission Date: 20120608
  Serious: Yes (Other)
  Sender: FDA-Public Use
  Company Number: ES-AMGEN-ESPSP2012000306

PATIENT
  Age: 56 Year
  Sex: Female

DRUGS (1)
  1. ENBREL [Suspect]
     Indication: RHEUMATOID ARTHRITIS
     Dosage: 50 MG/ML, UNK
     Dates: start: 20111116, end: 20111130

REACTIONS (8)
  - DYSAESTHESIA [None]
  - APHONIA [None]
  - RASH PRURITIC [None]
  - TACHYCARDIA [None]
  - FATIGUE [None]
  - DYSPNOEA [None]
  - PARAESTHESIA [None]
  - PYREXIA [None]
